FAERS Safety Report 16451402 (Version 2)
Quarter: 2019Q2

REPORT INFORMATION
  Report Type: Report from Study
  Country: None (occurrence: AU)
  Receive Date: 20190619
  Receipt Date: 20190620
  Transmission Date: 20190711
  Serious: Yes (Hospitalization)
  Sender: FDA-Public Use
  Company Number: AU-ABBVIE-19K-008-2823157-00

PATIENT
  Age: 74 Year
  Sex: Male

DRUGS (1)
  1. LUCRIN DEPOT [Suspect]
     Active Substance: LEUPROLIDE ACETATE
     Indication: PROSTATE CANCER
     Route: 030
     Dates: start: 201806

REACTIONS (3)
  - Joint range of motion decreased [Recovering/Resolving]
  - Bone abscess [Unknown]
  - Wound [Recovering/Resolving]

NARRATIVE: CASE EVENT DATE: 2019
